FAERS Safety Report 22302962 (Version 2)
Quarter: 2024Q4

REPORT INFORMATION
  Report Type: Spontaneous
  Country: US (occurrence: US)
  Receive Date: 20230510
  Receipt Date: 20241016
  Transmission Date: 20250115
  Serious: No
  Sender: SANOFI AVENTIS
  Company Number: US-SA-SAC20230508001271

PATIENT
  Age: 57 Year
  Sex: Male

DRUGS (1)
  1. DUPIXENT [Suspect]
     Active Substance: DUPILUMAB
     Indication: Psoriasis
     Dosage: 300 MG, QW
     Route: 058

REACTIONS (4)
  - Injection site swelling [Unknown]
  - Fatigue [Unknown]
  - Injection site pain [Unknown]
  - Product use in unapproved indication [Unknown]
